FAERS Safety Report 16343935 (Version 1)
Quarter: 2019Q2

REPORT INFORMATION
  Report Type: Spontaneous
  Country: CN (occurrence: CN)
  Receive Date: 20190522
  Receipt Date: 20190522
  Transmission Date: 20190711
  Serious: Yes (Other)
  Sender: FDA-Public Use
  Company Number: CN-ASTRAZENECA-2019SE71176

PATIENT
  Sex: Female

DRUGS (3)
  1. TAGRISSO [Suspect]
     Active Substance: OSIMERTINIB
     Indication: LUNG NEOPLASM MALIGNANT
     Dosage: ONE TABLET A DAY ORALLY
     Route: 048
  2. BETALOC [Concomitant]
     Active Substance: METOPROLOL TARTRATE
  3. METOPROLOL. [Concomitant]
     Active Substance: METOPROLOL

REACTIONS (6)
  - Palpitations [Unknown]
  - Blood pressure increased [Unknown]
  - Discomfort [Unknown]
  - Protein S decreased [Unknown]
  - Fatigue [Unknown]
  - Protein C decreased [Unknown]
